FAERS Safety Report 7419081-6 (Version None)
Quarter: 2011Q2

REPORT INFORMATION
  Report Type: 
  Country: None (occurrence: None)
  Receive Date: 20110415
  Receipt Date: 20110414
  Transmission Date: 20111010
  Serious: No
  Sender: FDA-Public Use
  Company Number: US-JNJFOC-20110304318

PATIENT
  Sex: Female
  Weight: 86.18 kg

DRUGS (5)
  1. DURAGESIC-100 [Suspect]
     Indication: PAIN
     Route: 062
  2. FENTANYL-100 [Suspect]
     Indication: PAIN
  3. DURAGESIC-100 [Suspect]
     Route: 062
  4. OXYCONTIN [Concomitant]
     Indication: PAIN
  5. UNKNOWN MEDICATION [Concomitant]

REACTIONS (7)
  - FEELING ABNORMAL [None]
  - DRUG EFFECT DECREASED [None]
  - HYPERSOMNIA [None]
  - INCORRECT DRUG ADMINISTRATION RATE [None]
  - INCORRECT DRUG ADMINISTRATION DURATION [None]
  - DRUG INEFFECTIVE [None]
  - WITHDRAWAL SYNDROME [None]
